FAERS Safety Report 7408237-4 (Version None)
Quarter: 2011Q2

REPORT INFORMATION
  Report Type: 
  Country: None (occurrence: None)
  Receive Date: 20110412
  Receipt Date: 20110201
  Transmission Date: 20111010
  Serious: No
  Sender: FDA-Public Use
  Company Number: A0911169A

PATIENT
  Age: 79 Year
  Sex: Male
  Weight: 80.9 kg

DRUGS (8)
  1. ARICEPT [Concomitant]
  2. DIGOXIN [Concomitant]
  3. DIAFORMIN [Concomitant]
  4. CIALIS [Concomitant]
  5. NUVIGIL [Concomitant]
  6. ENALAPRIL MALEATE [Concomitant]
  7. JALYN [Suspect]
     Indication: BENIGN PROSTATIC HYPERPLASIA
     Dosage: 1CAP PER DAY
     Route: 048
     Dates: start: 20110127
  8. UNKNOWN MEDICATION [Concomitant]

REACTIONS (2)
  - DIARRHOEA [None]
  - FLATULENCE [None]
